FAERS Safety Report 5353027-X (Version None)
Quarter: 2007Q2

REPORT INFORMATION
  Report Type: 
  Country: None (occurrence: None)
  Receive Date: 20070606
  Receipt Date: 20070604
  Transmission Date: 20071010
  Serious: Yes (Life-Threatening)
  Sender: FDA-Public Use
  Company Number: TCI2006A05962

PATIENT
  Age: 77 Year
  Sex: Male

DRUGS (7)
  1. LEUPROLIDE ACETATE [Suspect]
     Indication: PROSTATE CANCER STAGE III
     Dosage: 11.25 MG (11.25 MG, 1 IN 12 WK) SUBCUTANEOUS
     Route: 058
     Dates: start: 20060428, end: 20061013
  2. FLUTAMIDE [Suspect]
     Indication: PROSTATE CANCER STAGE III
     Dosage: 375 MG (375 MG, 1D) PER ORAL
     Route: 048
     Dates: start: 20061012
  3. BUP-4 (PROPIVERINE HYDROCHLORIDE) (TABLETS) [Concomitant]
  4. PLETAAL (CILOSTAZOL) (TABLETS) [Concomitant]
  5. JUVELA N (TOCOPHERYL NICOTINATE) (CAPSULES) [Concomitant]
  6. PROCYLIN (BERAPROST SODIUM) (TABLETS) [Concomitant]
  7. DEPAKENE (VALPROATE SODIUM) (TABLETS) [Concomitant]

REACTIONS (10)
  - ASPARTATE AMINOTRANSFERASE INCREASED [None]
  - BLOOD ALKALINE PHOSPHATASE INCREASED [None]
  - CARDIAC TAMPONADE [None]
  - LUNG ADENOCARCINOMA [None]
  - LUNG NEOPLASM MALIGNANT [None]
  - LYMPHADENOPATHY MEDIASTINAL [None]
  - NECK PAIN [None]
  - OEDEMA PERIPHERAL [None]
  - PERICARDIAL EFFUSION [None]
  - PULMONARY CONGESTION [None]
